FAERS Safety Report 5007194-8 (Version None)
Quarter: 2006Q1

REPORT INFORMATION
  Report Type: 
  Country: None (occurrence: None)
  Receive Date: 20060320
  Receipt Date: 20050519
  Transmission Date: 20060701
  Serious: Yes (Other)
  Sender: FDA-Public Use
  Company Number: 2005-05-1642

PATIENT
  Age: 24 Year
  Sex: Female
  Weight: 63.9572 kg

DRUGS (5)
  1. PEG-INTRON [Suspect]
     Indication: HEPATITIS C
     Dosage: 120 MCG QW SUBCUTANEOUS
     Route: 058
     Dates: start: 20040909, end: 20050513
  2. RIBAVIRIN [Suspect]
     Indication: HEPATITIS C
     Dosage: 1000 MG QD ORAL
     Route: 048
     Dates: start: 20040909, end: 20050513
  3. ALESSE 21 (ETHINYL ESTRADIOL/LEVONORGESTREL) [Concomitant]
  4. NUVARING [Concomitant]
  5. TRAZODONE HCL [Concomitant]

REACTIONS (2)
  - DEPRESSION [None]
  - DRUG EXPOSURE DURING PREGNANCY [None]
